FAERS Safety Report 4595606-3 (Version None)
Quarter: 2005Q1

REPORT INFORMATION
  Report Type: 
  Country: None (occurrence: None)
  Receive Date: 20050224
  Receipt Date: 20050208
  Transmission Date: 20050727
  Serious: Yes (Other)
  Sender: FDA-Public Use
  Company Number: 200501049

PATIENT
  Age: 71 Year
  Sex: Female

DRUGS (7)
  1. ORAL EPINASTINE [Suspect]
  2. PIOGLITAZONE HCL [Concomitant]
  3. FAMOTIDINE [Concomitant]
  4. FERROUS CITRATE [Concomitant]
  5. GLIBENCLAMIDE [Concomitant]
  6. SENNA ALEXANDRINA LEAF [Concomitant]
  7. TEPRENONE [Concomitant]

REACTIONS (1)
  - CEREBRAL HAEMORRHAGE [None]
